FAERS Safety Report 7488926-6 (Version None)
Quarter: 2011Q2

REPORT INFORMATION
  Report Type: 
  Country: None (occurrence: None)
  Receive Date: 20110518
  Receipt Date: 20110418
  Transmission Date: 20111010
  Serious: No
  Sender: FDA-Public Use
  Company Number: US-BAYER-2011-034535

PATIENT
  Age: 68 Year
  Sex: Female
  Weight: 58.957 kg

DRUGS (4)
  1. TRIAMTERENE [Concomitant]
     Dosage: UNK
  2. NORVASC [Concomitant]
  3. ALEVE (CAPLET) [Suspect]
     Indication: ARTHRITIS
     Dosage: 220 MG, BID, BOTTLE COUNT 50S
     Route: 048
     Dates: start: 20080101
  4. COZAAR [Concomitant]
     Dosage: UNK

REACTIONS (1)
  - NO ADVERSE EVENT [None]
